FAERS Safety Report 13451900 (Version 1)
Quarter: 2017Q2

REPORT INFORMATION
  Report Type: Spontaneous
  Country: US (occurrence: US)
  Receive Date: 20170417
  Receipt Date: 20170417
  Transmission Date: 20170830
  Serious: Yes (Death)
  Sender: FDA-Public Use
  Company Number: None

PATIENT
  Age: 75 Year
  Sex: Male

DRUGS (17)
  1. PRESERVISION [Concomitant]
     Active Substance: MINERALS\VITAMINS
  2. AMOXICILLIN. [Concomitant]
     Active Substance: AMOXICILLIN
  3. FLOMAX [Concomitant]
     Active Substance: TAMSULOSIN HYDROCHLORIDE
  4. TRAZODONE [Concomitant]
     Active Substance: TRAZODONE HYDROCHLORIDE
  5. AZELASTINE SPR [Concomitant]
  6. FLUTICASONE. [Concomitant]
     Active Substance: FLUTICASONE
  7. SENNA SMOOTH [Concomitant]
  8. DUCOSATE [Concomitant]
  9. LEXAPRO [Concomitant]
     Active Substance: ESCITALOPRAM OXALATE
  10. ALPRAZOLAM. [Concomitant]
     Active Substance: ALPRAZOLAM
  11. NUPLAZID [Suspect]
     Active Substance: PIMAVANSERIN TARTRATE
     Indication: PARKINSON^S DISEASE PSYCHOSIS
     Route: 048
     Dates: start: 201609, end: 201703
  12. SINEMET [Concomitant]
     Active Substance: CARBIDOPA\LEVODOPA
  13. NAMENDA [Concomitant]
     Active Substance: MEMANTINE HYDROCHLORIDE
  14. DULERA [Concomitant]
     Active Substance: FORMOTEROL FUMARATE DIHYDRATE\MOMETASONE FUROATE
  15. OXYBUTYNIN [Concomitant]
     Active Substance: OXYBUTYNIN
  16. ARICEPT [Concomitant]
     Active Substance: DONEPEZIL HYDROCHLORIDE
  17. ASPIRIN. [Concomitant]
     Active Substance: ASPIRIN

REACTIONS (2)
  - Respiratory failure [None]
  - Cardiac failure [None]

NARRATIVE: CASE EVENT DATE: 20170323
